FAERS Safety Report 4796778-8 (Version None)
Quarter: 2005Q4

REPORT INFORMATION
  Report Type: 
  Country: None (occurrence: None)
  Receive Date: 20051013
  Receipt Date: 20051003
  Transmission Date: 20060501
  Serious: Yes (Other)
  Sender: FDA-Public Use
  Company Number: 200517017US

PATIENT
  Sex: Male
  Weight: 97.7 kg

DRUGS (3)
  1. ALLEGRA-D [Suspect]
     Indication: SEASONAL ALLERGY
     Dosage: DOSE: ONE TABLET
     Route: 048
     Dates: start: 20051001, end: 20051001
  2. MULTIVITAMINS, PLAIN [Concomitant]
     Dosage: DOSE: UNKNOWN
     Route: 048
  3. ALLERGY SHOTS (IMMUNOTHERAPY) [Concomitant]
     Dosage: DOSE: UNKNOWN
     Route: 051
     Dates: start: 20050701

REACTIONS (4)
  - DYSPNOEA [None]
  - FOREIGN BODY TRAUMA [None]
  - PHARMACEUTICAL PRODUCT COMPLAINT [None]
  - RETCHING [None]
